FAERS Safety Report 6532943-7 (Version None)
Quarter: 2010Q1

REPORT INFORMATION
  Report Type: 
  Country: None (occurrence: None)
  Receive Date: 20100111
  Receipt Date: 20100105
  Transmission Date: 20100710
  Serious: Yes (Death, Hospitalization)
  Sender: FDA-Public Use
  Company Number: US-ASTRAZENECA-2010SE00890

PATIENT
  Age: 59 Year
  Sex: Male

DRUGS (7)
  1. ESOMEPRAZOLE SODIUM (NEXIUM) [Suspect]
     Route: 048
  2. DILTIAZEM [Suspect]
     Route: 048
  3. ALPRAZOLAM [Suspect]
     Route: 048
  4. SOTALOL HCL [Suspect]
     Route: 048
  5. SALICYLATE [Suspect]
     Route: 048
  6. HYDROMORPHONE [Suspect]
     Route: 048
  7. MORPHINE [Suspect]
     Route: 048

REACTIONS (2)
  - COMPLETED SUICIDE [None]
  - DRUG TOXICITY [None]
